FAERS Safety Report 4859956-5 (Version None)
Quarter: 2005Q4

REPORT INFORMATION
  Report Type: 
  Country: None (occurrence: None)
  Receive Date: 20051219
  Receipt Date: 20051207
  Transmission Date: 20060501
  Serious: Yes (Hospitalization)
  Sender: FDA-Public Use
  Company Number: FR-BRISTOL-MYERS SQUIBB COMPANY-13219084

PATIENT
  Age: 49 Year
  Sex: Male

DRUGS (8)
  1. ENDOXAN [Suspect]
     Route: 042
     Dates: start: 20040427, end: 20050817
  2. CORTANCYL [Suspect]
     Route: 048
     Dates: start: 20030915
  3. HUMIRA [Suspect]
     Route: 058
     Dates: start: 20050124, end: 20050805
  4. DIAMICRON [Concomitant]
     Dates: start: 20050104
  5. GLUCOPHAGE [Concomitant]
     Dates: start: 20050104
  6. POTASSIUM CHLORIDE [Concomitant]
     Dates: start: 20050124
  7. OROCAL D3 [Concomitant]
  8. FOSAMAX [Concomitant]

REACTIONS (1)
  - PYELONEPHRITIS [None]
